FAERS Safety Report 25028913 (Version 2)
Quarter: 2025Q1

REPORT INFORMATION
  Report Type: Spontaneous
  Country: JP (occurrence: JP)
  Receive Date: 20250302
  Receipt Date: 20250313
  Transmission Date: 20250409
  Serious: Yes (Death, Hospitalization, Other)
  Sender: TAKEDA
  Company Number: JP-TAKEDA-2025TJP002264

PATIENT
  Age: 7 Decade
  Sex: Female

DRUGS (1)
  1. FRUZAQLA [Suspect]
     Active Substance: FRUQUINTINIB
     Indication: Colon cancer
     Dosage: 5 MILLIGRAM, QD
     Dates: start: 20250129

REACTIONS (2)
  - Cold shock response [Fatal]
  - Ileus [Unknown]
